FAERS Safety Report 12279831 (Version 32)
Quarter: 2020Q1

REPORT INFORMATION
  Report Type: Report from Study
  Country: US (occurrence: US)
  Receive Date: 20160418
  Receipt Date: 20200302
  Transmission Date: 20200409
  Serious: Yes (Hospitalization, Other)
  Sender: FDA-Public Use
  Company Number: US-ACTELION-A-US2016-132345

PATIENT
  Age: 77 Year
  Sex: Female
  Weight: 61.22 kg

DRUGS (17)
  1. UPTRAVI [Suspect]
     Active Substance: SELEXIPAG
     Indication: PULMONARY ARTERIAL HYPERTENSION
     Dosage: 1000 MCG, BID
     Route: 048
  2. UPTRAVI [Suspect]
     Active Substance: SELEXIPAG
     Dosage: 1200 MCG, BID
     Route: 048
  3. VITAMIN C [Concomitant]
     Active Substance: ASCORBIC ACID
  4. IRON [Suspect]
     Active Substance: IRON
     Indication: ANAEMIA
     Dosage: UNK
     Route: 065
  5. UPTRAVI [Suspect]
     Active Substance: SELEXIPAG
     Dosage: 1000 MCG, BID
     Route: 048
  6. AUGMENTIN [Suspect]
     Active Substance: AMOXICILLIN\CLAVULANATE POTASSIUM
     Indication: PRODUCT USED FOR UNKNOWN INDICATION
     Route: 048
  7. XARELTO [Concomitant]
     Active Substance: RIVAROXABAN
  8. OPSUMIT [Suspect]
     Active Substance: MACITENTAN
     Indication: PULMONARY ARTERIAL HYPERTENSION
     Dosage: 10 MG, QD
     Route: 048
  9. ORENITRAM [Concomitant]
     Active Substance: TREPROSTINIL
  10. POTASSIUM [Concomitant]
     Active Substance: POTASSIUM
  11. ADEMPAS [Concomitant]
     Active Substance: RIOCIGUAT
     Dosage: UNK
  12. OPSUMIT [Suspect]
     Active Substance: MACITENTAN
     Dosage: 10 MG, QD
     Route: 048
  13. UPTRAVI [Suspect]
     Active Substance: SELEXIPAG
     Dosage: 200 MCG, BID
     Route: 048
     Dates: start: 20160126
  14. WARFARIN [Concomitant]
     Active Substance: WARFARIN
  15. OPSUMIT [Suspect]
     Active Substance: MACITENTAN
     Dosage: 10 MG, QD
     Route: 048
     Dates: start: 20141106
  16. SILDENAFIL. [Concomitant]
     Active Substance: SILDENAFIL
     Route: 065
  17. ZYRTEC [Concomitant]
     Active Substance: CETIRIZINE HYDROCHLORIDE

REACTIONS (48)
  - Gastrointestinal neoplasm [Unknown]
  - Decreased appetite [Unknown]
  - Condition aggravated [Unknown]
  - Gastrointestinal haemorrhage [Unknown]
  - Internal haemorrhage [Unknown]
  - Cardiac disorder [Unknown]
  - Blood count abnormal [Unknown]
  - Fall [Unknown]
  - Nausea [Unknown]
  - Anal incontinence [Unknown]
  - Malaise [Unknown]
  - Abdominal pain upper [Unknown]
  - Blood glucose decreased [Unknown]
  - Cough [Unknown]
  - Gastrointestinal carcinoma [Unknown]
  - Diarrhoea [Unknown]
  - Somnolence [Unknown]
  - Dyspnoea exertional [Unknown]
  - Cardiac failure [Unknown]
  - Nasal congestion [Unknown]
  - Dyspepsia [Unknown]
  - Nasopharyngitis [Unknown]
  - Productive cough [Unknown]
  - Haemoptysis [Unknown]
  - Asthenia [Unknown]
  - Gastrointestinal disorder [Unknown]
  - Transfusion [Unknown]
  - Rhinorrhoea [Unknown]
  - Vomiting [Unknown]
  - Neoplasm [Unknown]
  - Gastric cancer [Unknown]
  - Anaemia [Unknown]
  - Haemoglobin decreased [Unknown]
  - Multiple allergies [Unknown]
  - Weight decreased [Unknown]
  - Presyncope [Unknown]
  - Small intestinal polypectomy [Unknown]
  - Muscle spasms [Unknown]
  - Dizziness [Unknown]
  - Sleep apnoea syndrome [Unknown]
  - Hypoacusis [Unknown]
  - Dyspnoea [Unknown]
  - Gastrointestinal surgery [Unknown]
  - Pneumonia [Unknown]
  - Lung disorder [Unknown]
  - Functional gastrointestinal disorder [Unknown]
  - Blood glucose increased [Unknown]
  - Arthritis infective [Unknown]

NARRATIVE: CASE EVENT DATE: 20160405
